FAERS Safety Report 6390089-5 (Version None)
Quarter: 2009Q4

REPORT INFORMATION
  Report Type: 
  Country: None (occurrence: None)
  Receive Date: 20091006
  Receipt Date: 20090924
  Transmission Date: 20100525
  Serious: Yes (Other)
  Sender: FDA-Public Use
  Company Number: US-JNJFOC-20090908438

PATIENT
  Age: 7 Year
  Sex: Female
  Weight: 25.4 kg

DRUGS (5)
  1. TYLENOL (GELTAB) [Suspect]
     Route: 048
  2. TYLENOL (GELTAB) [Suspect]
     Indication: HEADACHE
     Route: 048
  3. CHILDREN'S LIQUID TYLENOL VERY BERRY SUSPENSION [Suspect]
     Route: 048
  4. CHILDREN'S LIQUID TYLENOL VERY BERRY SUSPENSION [Suspect]
     Indication: PYREXIA
     Route: 048
  5. LAMICTAL [Concomitant]
     Indication: EPILEPSY

REACTIONS (2)
  - TRANSMISSION OF AN INFECTIOUS AGENT VIA A MEDICINAL PRODUCT [None]
  - VOMITING [None]
